FAERS Safety Report 12520737 (Version 1)
Quarter: 2016Q3

REPORT INFORMATION
  Report Type: Spontaneous
  Country: ES (occurrence: ES)
  Receive Date: 20160701
  Receipt Date: 20160701
  Transmission Date: 20161109
  Serious: Yes (Other)
  Sender: FDA-Public Use
  Company Number: ES-VIIV HEALTHCARE LIMITED-ES2016GSK090581

PATIENT
  Sex: Male

DRUGS (1)
  1. TIVICAY [Suspect]
     Active Substance: DOLUTEGRAVIR SODIUM
     Indication: PROPHYLAXIS
     Dosage: 1 DF, UNK
     Route: 048

REACTIONS (4)
  - Drug resistance [Unknown]
  - Blood HIV RNA increased [Unknown]
  - Gene mutation [Unknown]
  - Off label use [Unknown]
